APPROVED DRUG PRODUCT: SODIUM NITROPRUSSIDE
Active Ingredient: SODIUM NITROPRUSSIDE
Strength: 50MG/VIAL
Dosage Form/Route: INJECTABLE;INJECTION
Application: A070031 | Product #001
Applicant: ABRAXIS PHARMACEUTICAL PRODUCTS
Approved: Jan 17, 1985 | RLD: No | RS: No | Type: DISCN